FAERS Safety Report 14285442 (Version 1)
Quarter: 2017Q4

REPORT INFORMATION
  Report Type: Spontaneous
  Country: US (occurrence: US)
  Receive Date: 20171214
  Receipt Date: 20171214
  Transmission Date: 20180321
  Serious: Yes (Hospitalization)
  Sender: FDA-Public Use
  Company Number: None

PATIENT
  Age: 58 Year
  Sex: Male
  Weight: 95.4 kg

DRUGS (12)
  1. ONDANSETRON [Concomitant]
     Active Substance: ONDANSETRON
  2. PROCHLORPERAZINE. [Concomitant]
     Active Substance: PROCHLORPERAZINE
  3. SIMVASTATIN. [Concomitant]
     Active Substance: SIMVASTATIN
  4. GLYBURIDE. [Concomitant]
     Active Substance: GLYBURIDE
  5. JANUMET [Concomitant]
     Active Substance: METFORMIN HYDROCHLORIDE\SITAGLIPTIN PHOSPHATE
  6. EPIPEN [Concomitant]
     Active Substance: EPINEPHRINE
  7. CAPECITABINE. [Suspect]
     Active Substance: CAPECITABINE
     Indication: PERITONEAL DISORDER
     Route: 048
  8. CLINDAGEL [Concomitant]
     Active Substance: CLINDAMYCIN PHOSPHATE
  9. LISINOPRIL. [Concomitant]
     Active Substance: LISINOPRIL
  10. LOPERAMIDE [Concomitant]
     Active Substance: LOPERAMIDE
  11. VITAMIN D [Concomitant]
     Active Substance: CHOLECALCIFEROL
  12. NOVOLOG [Concomitant]
     Active Substance: INSULIN ASPART

REACTIONS (1)
  - Small intestinal obstruction [None]

NARRATIVE: CASE EVENT DATE: 20171120
